FAERS Safety Report 9052210 (Version 3)
Quarter: 2013Q2

REPORT INFORMATION
  Report Type: Spontaneous
  Country: US (occurrence: US)
  Receive Date: 20130206
  Receipt Date: 20130429
  Transmission Date: 20140414
  Serious: No
  Sender: FDA-Public Use
  Company Number: US-BIOGENIDEC-2013BI009428

PATIENT
  Age: 48 Year
  Sex: Female

DRUGS (1)
  1. AVONEX [Suspect]
     Indication: MULTIPLE SCLEROSIS
     Route: 030
     Dates: start: 20000509

REACTIONS (8)
  - Scar [Not Recovered/Not Resolved]
  - Injection site scar [Unknown]
  - Induration [Not Recovered/Not Resolved]
  - Frustration [Not Recovered/Not Resolved]
  - Nervousness [Recovered/Resolved]
  - Panic reaction [Recovered/Resolved]
  - Injection site pain [Recovered/Resolved with Sequelae]
  - Anxiety [Recovered/Resolved with Sequelae]
